FAERS Safety Report 7656115-8 (Version None)
Quarter: 2011Q3

REPORT INFORMATION
  Report Type: 
  Country: None (occurrence: None)
  Receive Date: 20110801
  Receipt Date: 20110715
  Transmission Date: 20111222
  Serious: Yes (Disabling)
  Sender: FDA-Public Use
  Company Number: 2011MA009172

PATIENT
  Sex: Female

DRUGS (1)
  1. METOCLOPRAMIDE [Suspect]
     Indication: GASTROINTESTINAL DISORDER
     Dates: start: 20040101, end: 20051001

REACTIONS (11)
  - DYSKINESIA [None]
  - ANXIETY [None]
  - DRUG PRESCRIBING ERROR [None]
  - MULTIPLE INJURIES [None]
  - EXTRAPYRAMIDAL DISORDER [None]
  - PAIN [None]
  - MENTAL DISORDER [None]
  - NERVOUS SYSTEM DISORDER [None]
  - ECONOMIC PROBLEM [None]
  - ACTIVITIES OF DAILY LIVING IMPAIRED [None]
  - FAMILY STRESS [None]
